FAERS Safety Report 5954465-4 (Version None)
Quarter: 2008Q4

REPORT INFORMATION
  Report Type: 
  Country: None (occurrence: None)
  Receive Date: 20081117
  Receipt Date: 20081103
  Transmission Date: 20090506
  Serious: Yes (Other)
  Sender: FDA-Public Use
  Company Number: US-JNJCH-2008054640

PATIENT
  Age: 6 Year
  Sex: Male

DRUGS (3)
  1. PSEUDOEPHEDRINE HCL [Suspect]
     Indication: UPPER RESPIRATORY TRACT INFECTION
     Dosage: TEXT:UNKNOWN
     Route: 065
  2. IBUPROFEN TABLETS [Suspect]
     Indication: UPPER RESPIRATORY TRACT INFECTION
     Dosage: TEXT:UNKNOWN
     Route: 065
  3. ACETAMINOPHEN [Suspect]
     Indication: DRUG USE FOR UNKNOWN INDICATION
     Dosage: TEXT:UNKNOWN
     Route: 065

REACTIONS (1)
  - HYPERSENSITIVITY [None]
